FAERS Safety Report 25009563 (Version 1)
Quarter: 2025Q1

REPORT INFORMATION
  Report Type: Spontaneous
  Country: BF (occurrence: BF)
  Receive Date: 20250225
  Receipt Date: 20250225
  Transmission Date: 20250409
  Serious: Yes (Hospitalization, Other)
  Sender: RANBAXY
  Company Number: BF-SUN PHARMACEUTICAL INDUSTRIES LTD-2025R1-495432

PATIENT
  Age: 84 Year
  Sex: Female

DRUGS (1)
  1. LITHIUM [Suspect]
     Active Substance: LITHIUM
     Indication: Product used for unknown indication
     Route: 065

REACTIONS (4)
  - Cotard^s syndrome [Recovered/Resolved]
  - Toxicity to various agents [Unknown]
  - Condition aggravated [Unknown]
  - Major depression [Recovered/Resolved]
